FAERS Safety Report 14115339 (Version 1)
Quarter: 2017Q4

REPORT INFORMATION
  Report Type: Report from Study
  Country: None (occurrence: GB)
  Receive Date: 20171023
  Receipt Date: 20171023
  Transmission Date: 20180321
  Serious: Yes (Hospitalization)
  Sender: FDA-Public Use
  Company Number: GB-ABBVIE-17K-167-2130883-00

PATIENT
  Age: 64 Year
  Sex: Male

DRUGS (3)
  1. SULPHASALAZINE [Concomitant]
     Active Substance: SULFASALAZINE
     Indication: RHEUMATOID ARTHRITIS
  2. LEFLUNOMIDE. [Concomitant]
     Active Substance: LEFLUNOMIDE
     Indication: RHEUMATOID ARTHRITIS
  3. HUMIRA [Suspect]
     Active Substance: ADALIMUMAB
     Indication: RHEUMATOID ARTHRITIS
     Route: 058
     Dates: start: 20100905, end: 20161229

REACTIONS (7)
  - Haematuria [Unknown]
  - Acute kidney injury [Unknown]
  - Nerve root compression [Unknown]
  - Chronic kidney disease [Unknown]
  - Toxicity to various agents [Unknown]
  - Spinal column stenosis [Unknown]
  - Back pain [Unknown]

NARRATIVE: CASE EVENT DATE: 20161229
